FAERS Safety Report 14717479 (Version 1)
Quarter: 2018Q2

REPORT INFORMATION
  Report Type: Spontaneous
  Country: US (occurrence: US)
  Receive Date: 20180404
  Receipt Date: 20180404
  Transmission Date: 20180711
  Serious: No
  Sender: FDA-Public Use
  Company Number: US-SA-2018SA002844

PATIENT
  Age: 67 Year
  Sex: Male

DRUGS (13)
  1. CRESTOR [Concomitant]
     Active Substance: ROSUVASTATIN CALCIUM
  2. ASPIRIN. [Concomitant]
     Active Substance: ASPIRIN
  3. ZETIA [Concomitant]
     Active Substance: EZETIMIBE
  4. VIAGRA [Concomitant]
     Active Substance: SILDENAFIL CITRATE
  5. DUPIXENT [Suspect]
     Active Substance: DUPILUMAB
     Indication: DERMATITIS ATOPIC
     Route: 058
     Dates: start: 20170912
  6. OMEPRAZOLE. [Concomitant]
     Active Substance: OMEPRAZOLE
  7. LISINOPRIL. [Concomitant]
     Active Substance: LISINOPRIL
  8. KERYDIN [Concomitant]
     Active Substance: TAVABOROLE
  9. JUBLIA [Concomitant]
     Active Substance: EFINACONAZOLE
  10. ZYRTEC [Concomitant]
     Active Substance: CETIRIZINE HYDROCHLORIDE
  11. CLOBETASOL [Concomitant]
     Active Substance: CLOBETASOL
  12. FLUTICASONE. [Concomitant]
     Active Substance: FLUTICASONE
  13. AZELASTINE. [Concomitant]
     Active Substance: AZELASTINE HYDROCHLORIDE

REACTIONS (2)
  - Drug dose omission [Unknown]
  - Dermatitis [Unknown]
